FAERS Safety Report 11211956 (Version 1)
Quarter: 2015Q2

REPORT INFORMATION
  Report Type: Spontaneous
  Country: IT (occurrence: IT)
  Receive Date: 20150623
  Receipt Date: 20150623
  Transmission Date: 20150821
  Serious: Yes (Disabling)
  Sender: FDA-Public Use
  Company Number: IT-EMD SERONO-8030421

PATIENT
  Age: 34 Year
  Sex: Male
  Weight: 58 kg

DRUGS (5)
  1. OMNIC [Suspect]
     Active Substance: TAMSULOSIN HYDROCHLORIDE
     Indication: NEUROGENIC BLADDER
     Route: 048
  2. RIVOTRIL [Concomitant]
     Active Substance: CLONAZEPAM
     Indication: PRODUCT USED FOR UNKNOWN INDICATION
     Route: 048
     Dates: start: 20140601, end: 20150604
  3. PARACETAMOL [Suspect]
     Active Substance: ACETAMINOPHEN
     Indication: INFLUENZA
     Route: 048
     Dates: start: 20140127, end: 20150313
  4. REBIF [Suspect]
     Active Substance: INTERFERON BETA-1A
     Indication: RELAPSING-REMITTING MULTIPLE SCLEROSIS
     Dosage: 44 MCG/ 0.5 ML
     Route: 058
     Dates: start: 20140127, end: 20150313
  5. REBIF [Suspect]
     Active Substance: INTERFERON BETA-1A
     Dosage: RE-INTODUCED
     Route: 058

REACTIONS (3)
  - Testicular swelling [Recovered/Resolved with Sequelae]
  - Relapsing fever [Recovered/Resolved with Sequelae]
  - Testicular infarction [Recovered/Resolved with Sequelae]

NARRATIVE: CASE EVENT DATE: 20150313
